FAERS Safety Report 6897960-6 (Version None)
Quarter: 2010Q3

REPORT INFORMATION
  Report Type: 
  Country: None (occurrence: None)
  Receive Date: 20100802
  Receipt Date: 20070809
  Transmission Date: 20110219
  Serious: No
  Sender: FDA-Public Use
  Company Number: US-PFIZER INC-2007067679

PATIENT
  Sex: Male
  Weight: 97.2 kg

DRUGS (5)
  1. LYRICA [Suspect]
     Indication: NEUROPATHY PERIPHERAL
  2. NEXIUM [Concomitant]
  3. TENEX [Concomitant]
  4. MAVIK [Concomitant]
  5. GLUCOTROL [Concomitant]

REACTIONS (1)
  - NAUSEA [None]
